FAERS Safety Report 8906917 (Version 1)
Quarter: 2012Q4

REPORT INFORMATION
  Report Type: 
  Country: US (occurrence: US)
  Receive Date: 20121113
  Receipt Date: 20121113
  Transmission Date: 20130627
  Serious: No
  Sender: FDA-Public Use
  Company Number: US-AMGEN-USASP2012011049

PATIENT
  Age: 62 Year
  Sex: Female
  Weight: 72.56 kg

DRUGS (9)
  1. ENBREL [Suspect]
     Indication: PRODUCT USED FOR UNKNOWN INDICATION
     Dosage: 25 mg, 2 times/wk
  2. HYDROXYCHLOROQUINE [Concomitant]
  3. ZOLPIDEM [Concomitant]
     Dosage: 5 mg, UNK
  4. METHOTREXATE [Concomitant]
     Dosage: 2.5 mg, UNK
  5. SYNTHROID [Concomitant]
  6. DICLOFENAC [Concomitant]
     Dosage: 100 mg, UNK
  7. POTASSIUM [Concomitant]
     Dosage: 75 mg, UNK
  8. VITAMIN C                          /00008001/ [Concomitant]
     Dosage: 500 mg, UNK
  9. FOLIC ACID [Concomitant]

REACTIONS (1)
  - Injection site pain [Not Recovered/Not Resolved]
